FAERS Safety Report 8801320 (Version 1)
Quarter: 2012Q4

REPORT INFORMATION
  Report Type: 
  Country: GB (occurrence: GB)
  Receive Date: 20120920
  Receipt Date: 20120920
  Transmission Date: 20130627
  Serious: Yes (Other)
  Sender: FDA-Public Use
  Company Number: GB-TEVA-358068ISR

PATIENT
  Age: 58 Year

DRUGS (5)
  1. FLUDARABINE [Suspect]
     Indication: CHRONIC LYMPHOCYTIC LEUKAEMIA
  2. MABTHERA [Suspect]
     Indication: CHRONIC LYMPHOCYTIC LEUKAEMIA
     Dosage: 100 mg on day 1, remainder on day 2
     Route: 065
  3. MABTHERA [Suspect]
     Dosage: slow infusion and later on fast infusion, total 6xFCR
     Route: 065
  4. CYCLOPHOSPHAMIDE [Suspect]
     Indication: CHRONIC LYMPHOCYTIC LEUKAEMIA
  5. ALLOPURINOL [Concomitant]
     Route: 048

REACTIONS (1)
  - Infusion related reaction [Unknown]
